FAERS Safety Report 9921780 (Version 1)
Quarter: 2014Q1

REPORT INFORMATION
  Report Type: Spontaneous
  Country: FR (occurrence: FR)
  Receive Date: 20140225
  Receipt Date: 20140225
  Transmission Date: 20141002
  Serious: Yes (Disabling)
  Sender: FDA-Public Use
  Company Number: FR-ASTRAZENECA-2014SE08828

PATIENT
  Age: 19180 Day
  Sex: Female

DRUGS (2)
  1. XYLOCAINE [Suspect]
     Dosage: ONCE/SINGLE ADMINISTRATION
     Route: 050
     Dates: start: 20130114, end: 20130114
  2. ALTIM [Concomitant]
     Indication: TENDONITIS
     Dosage: ONCE/SINGLE ADMINISTRATION
     Route: 050
     Dates: start: 20130114, end: 20130114

REACTIONS (2)
  - Anosmia [Not Recovered/Not Resolved]
  - Ageusia [Not Recovered/Not Resolved]
